FAERS Safety Report 7874943-0 (Version None)
Quarter: 2011Q4

REPORT INFORMATION
  Report Type: 
  Country: None (occurrence: None)
  Receive Date: 20111031
  Receipt Date: 20111026
  Transmission Date: 20120403
  Serious: Yes (Other)
  Sender: FDA-Public Use
  Company Number: US-JNJFOC-20111011856

PATIENT
  Sex: Female
  Weight: 89.36 kg

DRUGS (2)
  1. MULTIPLE MEDICATIONS, NOS [Concomitant]
     Indication: PRODUCT USED FOR UNKNOWN INDICATION
  2. DURAGESIC-100 [Suspect]
     Indication: PAIN
     Route: 062

REACTIONS (4)
  - ARTHRITIS [None]
  - WRONG TECHNIQUE IN DRUG USAGE PROCESS [None]
  - FIBROMYALGIA [None]
  - PRODUCT QUALITY ISSUE [None]
